FAERS Safety Report 8460742-8 (Version None)
Quarter: 2012Q2

REPORT INFORMATION
  Report Type: 
  Country: None (occurrence: None)
  Receive Date: 20120622
  Receipt Date: 20120618
  Transmission Date: 20120825
  Serious: Yes (Life-Threatening, Hospitalization)
  Sender: FDA-Public Use
  Company Number: AE-ELI_LILLY_AND_COMPANY-AE201206004185

PATIENT
  Sex: Female
  Weight: 75 kg

DRUGS (5)
  1. ASPIRIN [Concomitant]
     Indication: PROPHYLAXIS
     Dosage: 100 MG, UNKNOWN
  2. CRESTOR [Concomitant]
     Indication: DYSLIPIDAEMIA
     Dosage: 10 MG, UNKNOWN
  3. NOVONORM [Concomitant]
     Indication: DIABETES MELLITUS
     Dosage: 2 MG, TID
  4. BYDUREON [Suspect]
     Indication: TYPE 2 DIABETES MELLITUS
     Dosage: 2 MG, WEEKLY (1/W)
     Route: 058
     Dates: start: 20120413, end: 20120608
  5. ATACAND [Concomitant]
     Indication: HYPERTENSION
     Dosage: 8 MG, QD

REACTIONS (1)
  - HYPOVOLAEMIC SHOCK [None]
